FAERS Safety Report 6935696-3 (Version None)
Quarter: 2010Q3

REPORT INFORMATION
  Report Type: 
  Country: None (occurrence: None)
  Receive Date: 20100823
  Receipt Date: 20100809
  Transmission Date: 20110219
  Serious: Yes (Death, Hospitalization, Other)
  Sender: FDA-Public Use
  Company Number: PHHO2010US12274

PATIENT
  Sex: Male

DRUGS (35)
  1. ALDESLEUKIN C-ALDE+ [Suspect]
     Indication: MALIGNANT MELANOMA
     Dosage: 6 MILLION IUS/DAY FROM DAYS 1-5 AND 8-12
     Route: 058
     Dates: start: 20100716
  2. ANTINEOPLASTIC AGENTS [Suspect]
     Indication: MALIGNANT MELANOMA
     Dosage: UNK
     Route: 042
     Dates: start: 20100716
  3. FLUDARABINE PHOSPHATE [Suspect]
  4. CYCLOPHOSPHAMIDE [Suspect]
  5. FLUID/ELECTROLYTE REPLACEMENT THERAPY [Suspect]
  6. ZESTRIL [Concomitant]
  7. NORVASC [Concomitant]
  8. COREG [Concomitant]
  9. LASIX [Concomitant]
  10. PROTONIX [Concomitant]
  11. TRAZODONE HCL [Concomitant]
  12. REMERON [Concomitant]
  13. VALTREX [Concomitant]
  14. ACYCLOVIR [Concomitant]
  15. SPIRONOLACTONE [Concomitant]
  16. NEUPOGEN [Concomitant]
  17. INSULIN GLARGINE [Concomitant]
  18. REGULAR INSULIN [Concomitant]
  19. DOCUSATE [Concomitant]
  20. OXYCODONE [Concomitant]
  21. FAMOTIDINE [Concomitant]
  22. ACETAMINOPHEN [Concomitant]
  23. LORAZEPAM [Concomitant]
  24. POTASSIUM CHLORIDE [Concomitant]
  25. DIPHENHYDRAMINE [Concomitant]
  26. INDOMETHACIN [Concomitant]
  27. DOPAMINE HCL [Concomitant]
  28. PROCHLORPERAZINE [Concomitant]
  29. ONDANSETRON [Concomitant]
  30. FOSINOPRIL SODIUM [Concomitant]
  31. CEFEPIME [Concomitant]
  32. LEVAQUIN [Concomitant]
  33. BACTRIM DS [Concomitant]
  34. FLUCONAZOLE [Concomitant]
  35. VALACYCLOVIR [Concomitant]

REACTIONS (23)
  - ATELECTASIS [None]
  - BREATH SOUNDS ABNORMAL [None]
  - CARDIAC FAILURE CONGESTIVE [None]
  - CONFUSIONAL STATE [None]
  - CORONARY ARTERY DISEASE [None]
  - CREPITATIONS [None]
  - DIASTOLIC DYSFUNCTION [None]
  - DISORIENTATION [None]
  - DYSPNOEA [None]
  - EJECTION FRACTION DECREASED [None]
  - FEBRILE NEUTROPENIA [None]
  - FLUID OVERLOAD [None]
  - HYPOXIA [None]
  - LEFT VENTRICULAR DYSFUNCTION [None]
  - LUNG CONSOLIDATION [None]
  - MYOCARDIAL INFARCTION [None]
  - OEDEMA PERIPHERAL [None]
  - PANCYTOPENIA [None]
  - PLEURAL EFFUSION [None]
  - PULMONARY OEDEMA [None]
  - RALES [None]
  - TACHYPNOEA [None]
  - VENTRICULAR HYPOKINESIA [None]
